FAERS Safety Report 4482194-5 (Version None)
Quarter: 2004Q4

REPORT INFORMATION
  Report Type: 
  Country: None (occurrence: None)
  Receive Date: 20041020
  Receipt Date: 20041004
  Transmission Date: 20050328
  Serious: Yes (Death)
  Sender: FDA-Public Use
  Company Number: USA041080229

PATIENT
  Age: 52 Year
  Sex: Female

DRUGS (2)
  1. FORTEO [Suspect]
  2. CALCIUM [Concomitant]

REACTIONS (5)
  - CEREBROVASCULAR ACCIDENT [None]
  - DISSEMINATED INTRAVASCULAR COAGULATION [None]
  - IMPLANT SITE INFECTION [None]
  - SEPSIS [None]
  - STAPHYLOCOCCAL INFECTION [None]
